FAERS Safety Report 9242862 (Version 1)
Quarter: 2013Q2

REPORT INFORMATION
  Report Type: Spontaneous
  Country: GB (occurrence: GB)
  Receive Date: 20130419
  Receipt Date: 20130419
  Transmission Date: 20140414
  Serious: Yes (Hospitalization)
  Sender: FDA-Public Use
  Company Number: GB-ROXANE LABORATORIES, INC.-2013-RO-00494RO

PATIENT
  Age: 55 Year
  Sex: Female

DRUGS (3)
  1. LITHIUM CARBONATE [Suspect]
     Indication: BIPOLAR DISORDER
     Dosage: 300 MG
  2. CRESTOR [Concomitant]
     Dosage: 10 MG
  3. SYNTHROID [Concomitant]

REACTIONS (1)
  - Psychotic disorder [Unknown]
